FAERS Safety Report 7559465-9 (Version None)
Quarter: 2011Q2

REPORT INFORMATION
  Report Type: 
  Country: None (occurrence: None)
  Receive Date: 20110621
  Receipt Date: 20110613
  Transmission Date: 20111010
  Serious: Yes (Hospitalization, Other)
  Sender: FDA-Public Use
  Company Number: MX-BRISTOL-MYERS SQUIBB COMPANY-14187181

PATIENT
  Age: 77 Year
  Sex: Female

DRUGS (2)
  1. PLACEBO [Suspect]
     Indication: THROMBOSIS PROPHYLAXIS
     Route: 048
     Dates: start: 20080422, end: 20080508
  2. WARFARIN SODIUM [Suspect]
     Indication: THROMBOSIS PROPHYLAXIS
     Route: 048
     Dates: start: 20080422, end: 20080508

REACTIONS (3)
  - ACCIDENTAL OVERDOSE [None]
  - HAEMATURIA [None]
  - BLADDER PAIN [None]
